FAERS Safety Report 17797526 (Version 2)
Quarter: 2020Q2

REPORT INFORMATION
  Report Type: Spontaneous
  Country: DE (occurrence: DE)
  Receive Date: 20200518
  Receipt Date: 20200611
  Transmission Date: 20200714
  Serious: Yes (Hospitalization)
  Sender: FDA-Public Use
  Company Number: NVSC2020DE134198

PATIENT
  Sex: Female
  Weight: 80.4 kg

DRUGS (7)
  1. COSENTYX [Suspect]
     Active Substance: SECUKINUMAB
     Indication: PSORIASIS
     Dosage: 300 MG, UNKNOWN, (2X150 MG)
     Route: 058
     Dates: start: 20180307
  2. COSENTYX [Suspect]
     Active Substance: SECUKINUMAB
     Indication: PSORIATIC ARTHROPATHY
  3. VIANI [Concomitant]
     Active Substance: FLUTICASONE PROPIONATE\SALMETEROL XINAFOATE
     Indication: ASTHMA
     Dosage: 50/250, BID (0-0-1)
     Route: 055
  4. FENISTIL [Concomitant]
     Active Substance: DIMETHINDENE
     Indication: PRURITUS
     Dosage: 20 GTT, QD (DROPS)
     Route: 065
     Dates: start: 20200505
  5. COSENTYX [Suspect]
     Active Substance: SECUKINUMAB
     Indication: PSORIASIS
  6. LEVOCETIRIZINE [Concomitant]
     Active Substance: LEVOCETIRIZINE
     Indication: PRURITUS
     Dosage: 5 MG, QD (0-0-1)
     Route: 048
  7. MONTELUKAST [Concomitant]
     Active Substance: MONTELUKAST SODIUM
     Indication: ASTHMA
     Dosage: 10 MG, QD (0-0-1)
     Route: 048
     Dates: start: 20200222

REACTIONS (3)
  - Genital infection [Recovered/Resolved]
  - Dysuria [Recovered/Resolved]
  - Psoriasis [Recovered/Resolved]

NARRATIVE: CASE EVENT DATE: 20200421
